FAERS Safety Report 24699827 (Version 1)
Quarter: 2024Q4

REPORT INFORMATION
  Report Type: Spontaneous
  Country: US (occurrence: US)
  Receive Date: 20241205
  Receipt Date: 20241205
  Transmission Date: 20250115
  Serious: No
  Sender: ALIMERA
  Company Number: US-EYEPOINT PHARMACEUTICALS, INC.-US-EYP-23-00330

PATIENT

DRUGS (1)
  1. YUTIQ [Suspect]
     Active Substance: FLUOCINOLONE ACETONIDE
     Indication: Macular degeneration
     Dosage: 0.18 MILLIGRAM, SINGLE, LEFT EYE/OS
     Route: 031
     Dates: start: 20231012, end: 20231012

REACTIONS (1)
  - Off label use [Unknown]

NARRATIVE: CASE EVENT DATE: 20231012
